FAERS Safety Report 5250303-6 (Version None)
Quarter: 2007Q1

REPORT INFORMATION
  Report Type: 
  Country: None (occurrence: None)
  Receive Date: 20070228
  Receipt Date: 20060321
  Transmission Date: 20070707
  Serious: Yes (Other)
  Sender: FDA-Public Use
  Company Number: US-GLAXOSMITHKLINE-A0598445A

PATIENT
  Age: 53 Year
  Sex: Female

DRUGS (5)
  1. LAMICTAL [Suspect]
     Indication: BIPOLAR DISORDER
     Dosage: 100MG PER DAY
     Route: 048
     Dates: start: 20060101, end: 20060101
  2. EFFEXOR XR [Concomitant]
  3. SEROQUEL [Concomitant]
  4. UNKNOWN DRUG [Concomitant]
  5. LISINOPRIL [Concomitant]

REACTIONS (1)
  - RASH [None]
